FAERS Safety Report 17688209 (Version 4)
Quarter: 2024Q1

REPORT INFORMATION
  Report Type: Report from Study
  Country: GR (occurrence: GR)
  Receive Date: 20200421
  Receipt Date: 20240325
  Transmission Date: 20240410
  Serious: Yes (Hospitalization)
  Sender: FDA-Public Use
  Company Number: None

PATIENT
  Age: 51 Year
  Sex: Male
  Weight: 60 kg

DRUGS (1)
  1. MAYZENT [Suspect]
     Active Substance: SIPONIMOD
     Indication: Multiple sclerosis
     Dosage: 1 MG
     Route: 048
     Dates: start: 20200220, end: 20200412

REACTIONS (2)
  - Status epilepticus [Recovered/Resolved]
  - Partial seizures [Recovering/Resolving]

NARRATIVE: CASE EVENT DATE: 20200413
